FAERS Safety Report 10861762 (Version 3)
Quarter: 2015Q4

REPORT INFORMATION
  Report Type: Spontaneous
  Country: GB (occurrence: GB)
  Receive Date: 20150224
  Receipt Date: 20151106
  Transmission Date: 20160304
  Serious: Yes (Death, Life-Threatening, Hospitalization)
  Sender: FDA-Public Use
  Company Number: GB-NOVOPROD-438475

PATIENT
  Age: 54 Year
  Sex: Male

DRUGS (9)
  1. METFORMIN [Concomitant]
     Active Substance: METFORMIN HYDROCHLORIDE
     Indication: PRODUCT USED FOR UNKNOWN INDICATION
     Dosage: 1 TAB, UNK
     Route: 065
  2. PAROXETINE [Concomitant]
     Active Substance: PAROXETINE\PAROXETINE HYDROCHLORIDE
     Indication: PRODUCT USED FOR UNKNOWN INDICATION
     Dosage: 1 TAB, UNK
     Route: 065
  3. TAMSULOSIN [Concomitant]
     Active Substance: TAMSULOSIN
     Indication: PRODUCT USED FOR UNKNOWN INDICATION
     Dosage: 1 TAB, UNK
     Route: 065
  4. VICTOZA [Suspect]
     Active Substance: LIRAGLUTIDE
     Indication: OBESITY
     Dosage: UNK
     Route: 058
     Dates: start: 20130601, end: 20150130
  5. GLICLAZIDE [Concomitant]
     Active Substance: GLICLAZIDE
     Indication: PRODUCT USED FOR UNKNOWN INDICATION
     Dosage: 1 TAB, UNK
     Route: 065
  6. LITHIUM. [Concomitant]
     Active Substance: LITHIUM
     Indication: PRODUCT USED FOR UNKNOWN INDICATION
     Dosage: 1 TAB, UNK
     Route: 065
  7. SIMVASTATIN. [Concomitant]
     Active Substance: SIMVASTATIN
     Indication: PRODUCT USED FOR UNKNOWN INDICATION
     Dosage: 1 TAB, UNK
     Route: 065
  8. QUETIAPINE [Concomitant]
     Active Substance: QUETIAPINE
     Indication: PRODUCT USED FOR UNKNOWN INDICATION
     Dosage: 1 TAB, UNK
     Route: 065
  9. PROCYCLIDINE [Concomitant]
     Active Substance: PROCYCLIDINE
     Indication: PRODUCT USED FOR UNKNOWN INDICATION
     Dosage: 1 TAB, UNK
     Route: 065

REACTIONS (4)
  - Deep vein thrombosis [Unknown]
  - Off label use [Unknown]
  - Pancreatic carcinoma metastatic [Fatal]
  - Abnormal loss of weight [Unknown]

NARRATIVE: CASE EVENT DATE: 20150130
